FAERS Safety Report 6766088-8 (Version None)
Quarter: 2010Q2

REPORT INFORMATION
  Report Type: 
  Country: None (occurrence: None)
  Receive Date: 20100611
  Receipt Date: 20100601
  Transmission Date: 20101027
  Serious: Yes (Hospitalization)
  Sender: FDA-Public Use
  Company Number: PHHY2010IT36269

PATIENT
  Sex: Male

DRUGS (1)
  1. ZOMETA [Suspect]
     Indication: MULTIPLE MYELOMA
     Dosage: 1 POSOLOGICAL UNIT, CYCLIC
     Route: 042
     Dates: start: 20080613, end: 20080908

REACTIONS (3)
  - BONE DISORDER [None]
  - OSTEONECROSIS OF JAW [None]
  - SEQUESTRECTOMY [None]
